FAERS Safety Report 22165765 (Version 1)
Quarter: 2023Q1

REPORT INFORMATION
  Report Type: Spontaneous
  Country: US (occurrence: None)
  Receive Date: 20230331
  Receipt Date: 20230331
  Transmission Date: 20230418
  Serious: No
  Sender: FDA-Public Use
  Company Number: None

PATIENT
  Age: 79 Year
  Sex: Female
  Weight: 68.49 kg

DRUGS (6)
  1. CAPECITABINE [Suspect]
     Active Substance: CAPECITABINE
     Indication: Rectal cancer
     Dosage: FREQUENCY : TWICE A DAY;?
     Route: 048
  2. ATORVASTATIN [Concomitant]
  3. COLACE [Concomitant]
     Active Substance: DOCUSATE SODIUM
  4. DEPAKOTE [Concomitant]
  5. METOPROLOL [Concomitant]
  6. RISPERIDONE [Concomitant]

REACTIONS (5)
  - Haemoptysis [None]
  - Nail discolouration [None]
  - Skin discolouration [None]
  - Skin discolouration [None]
  - Pain in extremity [None]
